FAERS Safety Report 6291319-0 (Version None)
Quarter: 2009Q3

REPORT INFORMATION
  Report Type: 
  Country: None (occurrence: None)
  Receive Date: 20090728
  Receipt Date: 20090728
  Transmission Date: 20100115
  Serious: Yes (Hospitalization)
  Sender: FDA-Public Use
  Company Number: None

PATIENT
  Age: 83 Year
  Sex: Female
  Weight: 71.1 kg

DRUGS (7)
  1. WARFARIN SODIUM [Suspect]
     Indication: ATRIAL FIBRILLATION
     Dosage: 5MG ONCE DAILY PO
     Route: 048
     Dates: start: 20090705, end: 20090716
  2. WARFARIN SODIUM [Suspect]
     Indication: ATRIAL FIBRILLATION
     Dosage: 2MG ONCE DAILY PO
     Route: 048
     Dates: start: 20090716, end: 20090723
  3. LISINOPRIL [Concomitant]
  4. SYNTHROID [Concomitant]
  5. POTASSIUM CHLORIDE [Concomitant]
  6. PERCOCET [Concomitant]
  7. ASPIRIN [Concomitant]

REACTIONS (5)
  - BLISTER [None]
  - ERYTHEMA [None]
  - INTERNATIONAL NORMALISED RATIO INCREASED [None]
  - PROTHROMBIN TIME PROLONGED [None]
  - THROMBOCYTOPENIA [None]
